FAERS Safety Report 17303565 (Version 5)
Quarter: 2020Q1

REPORT INFORMATION
  Report Type: Report from Study
  Country: US (occurrence: US)
  Receive Date: 20200122
  Receipt Date: 20200326
  Transmission Date: 20200409
  Serious: Yes (Hospitalization)
  Sender: FDA-Public Use
  Company Number: US-ACTELION-A-NJ2019-192542

PATIENT
  Sex: Female
  Weight: 52.15 kg

DRUGS (4)
  1. OPSUMIT [Concomitant]
     Active Substance: MACITENTAN
     Indication: PULMONARY ARTERIAL HYPERTENSION
  2. VELETRI [Suspect]
     Active Substance: EPOPROSTENOL
     Dosage: 44 NG/KG, PER MIN
     Route: 042
  3. VELETRI [Suspect]
     Active Substance: EPOPROSTENOL
     Dosage: 45.5 NG
     Route: 042
  4. VELETRI [Suspect]
     Active Substance: EPOPROSTENOL
     Indication: PULMONARY ARTERIAL HYPERTENSION
     Dosage: 40.5 NG/KG, PER MIN
     Route: 042

REACTIONS (24)
  - Bronchitis [Unknown]
  - Eczema [Unknown]
  - Insomnia [Unknown]
  - Asthenia [Unknown]
  - Respiratory syncytial virus infection [Unknown]
  - Dyspnoea [Unknown]
  - Flushing [Unknown]
  - Pruritus [Unknown]
  - Scleroderma [Unknown]
  - Ulcer [Unknown]
  - Weight decreased [Unknown]
  - Catheter site haemorrhage [Unknown]
  - Catheter site thrombosis [Unknown]
  - Anaemia [Unknown]
  - Device physical property issue [Unknown]
  - Dyspnoea exertional [Unknown]
  - Dizziness [Unknown]
  - Lethargy [Unknown]
  - Sluggishness [Unknown]
  - Malaise [Unknown]
  - Palpitations [Unknown]
  - Decreased appetite [Unknown]
  - Nausea [Unknown]
  - Device occlusion [Unknown]
